FAERS Safety Report 7428474-2 (Version None)
Quarter: 2011Q2

REPORT INFORMATION
  Report Type: 
  Country: None (occurrence: None)
  Receive Date: 20110415
  Receipt Date: 20110415
  Transmission Date: 20111010
  Serious: Yes (Hospitalization)
  Sender: FDA-Public Use
  Company Number: None

PATIENT
  Sex: Female
  Weight: 76.4 kg

DRUGS (1)
  1. CETUXIMAB(ERBITUX) [Suspect]
     Dosage: 1254 MG

REACTIONS (5)
  - CYSTITIS [None]
  - WHITE BLOOD CELL COUNT DECREASED [None]
  - PYURIA [None]
  - HYPOKALAEMIA [None]
  - IMMUNOSUPPRESSION [None]
